FAERS Safety Report 7273125-3 (Version None)
Quarter: 2011Q1

REPORT INFORMATION
  Report Type: 
  Country: None (occurrence: None)
  Receive Date: 20110126
  Receipt Date: 20110111
  Transmission Date: 20110831
  Serious: Yes (Hospitalization)
  Sender: FDA-Public Use
  Company Number: 2011AP000014

PATIENT
  Age: 33 Year
  Sex: Male

DRUGS (3)
  1. LOSARTAN POTASSIUM [Concomitant]
  2. ALLOPURINOL [Suspect]
     Indication: HYPERURICAEMIA
     Dosage: 300 MG QD,
  3. LISINOPRIL [Concomitant]

REACTIONS (12)
  - DRUG RASH WITH EOSINOPHILIA AND SYSTEMIC SYMPTOMS [None]
  - ALANINE AMINOTRANSFERASE INCREASED [None]
  - HAEMOGLOBIN DECREASED [None]
  - BLOOD UREA INCREASED [None]
  - BLOOD BILIRUBIN INCREASED [None]
  - TACHYCARDIA [None]
  - HYPOVOLAEMIA [None]
  - HYPOTENSION [None]
  - LYMPHOCYTE MORPHOLOGY ABNORMAL [None]
  - BLOOD CREATININE INCREASED [None]
  - BLOOD POTASSIUM INCREASED [None]
  - BLOOD SODIUM DECREASED [None]
